FAERS Safety Report 8917014 (Version 2)
Quarter: 2013Q1

REPORT INFORMATION
  Report Type: Spontaneous
  Country: US (occurrence: US)
  Receive Date: 20121120
  Receipt Date: 20130111
  Transmission Date: 20140127
  Serious: No
  Sender: FDA-Public Use
  Company Number: US-VERTEX PHARMACEUTICAL INC.-2012-024755

PATIENT
  Sex: Male

DRUGS (3)
  1. INCIVEK [Suspect]
     Indication: HEPATITIS C
     Route: 048
  2. PEGINTERFERON [Suspect]
     Indication: HEPATITIS C
  3. RIBAVIRIN [Suspect]
     Indication: HEPATITIS C

REACTIONS (2)
  - Rash [Recovered/Resolved]
  - Pruritus [Unknown]
